FAERS Safety Report 5926013-6 (Version None)
Quarter: 2008Q3

REPORT INFORMATION
  Report Type: 
  Country: None (occurrence: None)
  Receive Date: 20080924
  Receipt Date: 20080829
  Transmission Date: 20090109
  Serious: Yes (Other)
  Sender: FDA-Public Use
  Company Number: US-WYE-H05814808

PATIENT
  Age: 47 Year
  Sex: Female
  Weight: 65.83 kg

DRUGS (8)
  1. TORISEL [Suspect]
     Indication: OVARIAN CANCER
     Dosage: 25 MG 1X PER 1 WK, INTRAVENOUS, 25MG 1XPER 1 DAY INTRAVENOUS
     Route: 042
     Dates: start: 20080717, end: 20080717
  2. TORISEL [Suspect]
     Indication: OVARIAN CANCER
     Dosage: 25 MG 1X PER 1 WK, INTRAVENOUS, 25MG 1XPER 1 DAY INTRAVENOUS
     Route: 042
     Dates: start: 20080807, end: 20080821
  3. AVASTIN [Concomitant]
  4. ATIVAN [Concomitant]
  5. PRILOSEC [Concomitant]
  6. NORVASC [Concomitant]
  7. VITAMIN D [Concomitant]
  8. PACLITAXEL [Concomitant]

REACTIONS (9)
  - ASTHENIA [None]
  - BURNING SENSATION [None]
  - DYSPNOEA [None]
  - FATIGUE [None]
  - FLUSHING [None]
  - HEART RATE INCREASED [None]
  - OROPHARYNGEAL PAIN [None]
  - SINUSITIS [None]
  - TUMOUR MARKER INCREASED [None]
